FAERS Safety Report 4865669-6 (Version None)
Quarter: 2005Q4

REPORT INFORMATION
  Report Type: 
  Country: None (occurrence: None)
  Receive Date: 20051220
  Receipt Date: 20051209
  Transmission Date: 20060501
  Serious: Yes (Hospitalization, Other)
  Sender: FDA-Public Use
  Company Number: USA-2005-0021930

PATIENT
  Age: 62 Year
  Sex: Female

DRUGS (13)
  1. THEOPHYLLINE [Suspect]
     Indication: CHRONIC OBSTRUCTIVE PULMONARY DISEASE
  2. NESIRITIDE (NESIRITIDE) [Suspect]
     Indication: CARDIAC FAILURE
     Dosage: INTRAVENOUS
     Route: 042
     Dates: start: 20051012
  3. ATROVENT [Concomitant]
  4. AMBIEN [Concomitant]
  5. HYDROCODONE BITARTRATE [Concomitant]
  6. PROMETHAZINE [Concomitant]
  7. DIGOXIN [Concomitant]
  8. FAMOTIDINE [Concomitant]
  9. LEVAQUIN [Concomitant]
  10. PREDNISONE [Concomitant]
  11. ADVAIR DISKUS (FLUTICASONE PROPIONATE, SALMETEROL XINAFOATE) [Concomitant]
  12. SINGULAIR ^DIECKMANN^ (MONTELUKAST SODIUM) [Concomitant]
  13. TERBUTALINE SULFATE [Concomitant]

REACTIONS (7)
  - ABNORMAL BEHAVIOUR [None]
  - AGITATION [None]
  - CARDIOACTIVE DRUG LEVEL DECREASED [None]
  - CONFUSIONAL STATE [None]
  - DISORIENTATION [None]
  - DRUG LEVEL INCREASED [None]
  - MENTAL STATUS CHANGES [None]
